FAERS Safety Report 9603118 (Version 4)
Quarter: 2013Q4

REPORT INFORMATION
  Report Type: Report from Study
  Country: FR (occurrence: FR)
  Receive Date: 20131007
  Receipt Date: 20131106
  Transmission Date: 20140711
  Serious: Yes (Hospitalization)
  Sender: FDA-Public Use
  Company Number: FR-GLAXOSMITHKLINE-Z0021294A

PATIENT
  Age: 46 Year
  Sex: Female
  Weight: 80 kg

DRUGS (3)
  1. DABRAFENIB [Suspect]
     Indication: COLORECTAL CANCER
     Dosage: 150MG TWICE PER DAY
     Route: 048
     Dates: start: 20130919
  2. TRAMETINIB [Suspect]
     Indication: COLORECTAL CANCER
     Dosage: 1.5MG PER DAY
     Route: 048
     Dates: start: 20130919
  3. PANITUMUMAB [Suspect]
     Indication: COLORECTAL CANCER
     Dosage: 385MG EVERY TWO WEEKS
     Route: 042
     Dates: start: 20130919

REACTIONS (1)
  - Vomiting [Recovered/Resolved]
